FAERS Safety Report 8365817-X (Version None)
Quarter: 2012Q2

REPORT INFORMATION
  Report Type: 
  Country: None (occurrence: None)
  Receive Date: 20120517
  Receipt Date: 20120514
  Transmission Date: 20120825
  Serious: Yes (Hospitalization)
  Sender: FDA-Public Use
  Company Number: US-ASTRAZENECA-2011SE32236

PATIENT
  Age: 49 Year
  Sex: Female

DRUGS (17)
  1. HYDROCO/ACETAMIN [Concomitant]
     Dosage: 10-325 MG
     Dates: start: 20100325
  2. NEXIUM [Suspect]
     Dosage: EVERY DAY
     Route: 048
     Dates: start: 20030101
  3. ZOLPIDEM [Concomitant]
     Indication: SLEEP DISORDER
  4. NEXIUM [Suspect]
     Indication: GASTROOESOPHAGEAL REFLUX DISEASE
     Route: 048
     Dates: start: 20010101, end: 20110101
  5. CRESTOR [Concomitant]
     Indication: BLOOD CHOLESTEROL INCREASED
  6. HYDROCODONE BITARTRATE [Concomitant]
     Indication: PAIN
     Dosage: AS NEEDED
  7. METOPROLOL TARTRATE [Concomitant]
     Dates: start: 20100309
  8. ZOLPIDEM [Concomitant]
     Dates: start: 20100309
  9. METOPROLOL TARTRATE [Concomitant]
  10. HYDROCHLOROTHIAZIDE [Concomitant]
     Dates: start: 20100309
  11. EXFORGE [Concomitant]
  12. NEXIUM [Suspect]
     Route: 048
     Dates: start: 20100226
  13. HYDROCHLOROTHIAZIDE [Concomitant]
     Indication: HYPERTENSION
  14. HYDROCODONE BITARTRATE [Concomitant]
     Dates: start: 20100323
  15. AMITRIPTYLINE HCL [Concomitant]
     Indication: DEPRESSION
  16. METHOCARBAMOL [Concomitant]
     Dates: start: 20100325
  17. OMEPRAZOLE CR [Concomitant]
     Dates: start: 20010101, end: 20110101

REACTIONS (6)
  - ANKLE FRACTURE [None]
  - DEPRESSION [None]
  - SCIATIC NERVE INJURY [None]
  - GLAUCOMA [None]
  - WALKING AID USER [None]
  - ARTHRITIS [None]
